FAERS Safety Report 9742487 (Version 1)
Quarter: 2013Q4

REPORT INFORMATION
  Report Type: Spontaneous
  Country: US (occurrence: US)
  Receive Date: 20131210
  Receipt Date: 20131210
  Transmission Date: 20140711
  Serious: Yes (Hospitalization, Other)
  Sender: FDA-Public Use
  Company Number: US-SA-2013SA127909

PATIENT
  Age: 74 Year
  Sex: Male
  Weight: 84.82 kg

DRUGS (3)
  1. LANTUS SOLOSTAR [Suspect]
     Indication: TYPE 2 DIABETES MELLITUS
     Dosage: DOSE:35 UNIT(S)
     Route: 058
  2. SOLOSTAR [Concomitant]
     Indication: TYPE 2 DIABETES MELLITUS
  3. GLIPIZIDE [Concomitant]
     Route: 065

REACTIONS (4)
  - Cardiac failure congestive [Unknown]
  - Fall [Unknown]
  - Eye injury [Unknown]
  - Weight decreased [Unknown]
